FAERS Safety Report 5896119-9 (Version None)
Quarter: 2008Q3

REPORT INFORMATION
  Report Type: 
  Country: None (occurrence: None)
  Receive Date: 20080924
  Receipt Date: 20070724
  Transmission Date: 20090109
  Serious: Yes (Other)
  Sender: FDA-Public Use
  Company Number: US-ASTRAZENECA-2007UW17987

PATIENT
  Age: 13 Year
  Sex: Male

DRUGS (6)
  1. SEROQUEL [Suspect]
     Indication: ANXIETY DISORDER
     Route: 048
     Dates: start: 20040310, end: 20040510
  2. SEROQUEL [Suspect]
     Indication: ABNORMAL BEHAVIOUR
     Route: 048
     Dates: start: 20040310, end: 20040510
  3. ZYPREXA [Concomitant]
     Dates: start: 20040812, end: 20040902
  4. RISPERDAL [Concomitant]
     Dates: start: 20010917, end: 20040902
  5. RISPERDAL [Concomitant]
     Dates: start: 20010917, end: 20040902
  6. RISPERDAL [Concomitant]
     Dates: start: 20010917, end: 20040902

REACTIONS (1)
  - TARDIVE DYSKINESIA [None]
